FAERS Safety Report 5009518-4 (Version None)
Quarter: 2006Q2

REPORT INFORMATION
  Report Type: 
  Country: None (occurrence: None)
  Receive Date: 20060522
  Receipt Date: 20060505
  Transmission Date: 20061013
  Serious: Yes (Death, Hospitalization)
  Sender: FDA-Public Use
  Company Number: COT_0502_2006

PATIENT
  Age: 50 Year
  Sex: Female

DRUGS (22)
  1. VENTAVIS [Suspect]
     Indication: PULMONARY HYPERTENSION
     Dosage: 2.5 MCG ONCE IH
     Route: 055
     Dates: start: 20060504, end: 20060504
  2. VENTAVIS [Suspect]
     Indication: PULMONARY HYPERTENSION
     Dosage: 5 MCG TWICE IH
     Route: 055
     Dates: start: 20060504, end: 20060504
  3. XALATAN [Concomitant]
  4. SILDENAFIL CITRATE [Concomitant]
  5. RESTORIL [Concomitant]
  6. BACTRIM [Concomitant]
  7. PRILOSEC [Concomitant]
  8. OS-CAL [Concomitant]
  9. PREDNISONE [Concomitant]
  10. FUROSEMIDE [Concomitant]
  11. COUMADIN [Concomitant]
  12. KLOR-CON [Concomitant]
  13. BETAGAN [Concomitant]
  14. COMBIVENT [Concomitant]
  15. ADVAIR DISKUS 100/50 [Concomitant]
  16. METFORMIN [Concomitant]
  17. FLONASE [Concomitant]
  18. MULTI-VITAMIN [Concomitant]
  19. TRACLEER [Concomitant]
  20. AZATHIOPRINE [Concomitant]
  21. CELEXA [Concomitant]
  22. OXYGEN [Concomitant]

REACTIONS (9)
  - ACUTE RESPIRATORY DISTRESS SYNDROME [None]
  - CONDITION AGGRAVATED [None]
  - CYANOSIS [None]
  - DISEASE PROGRESSION [None]
  - DIZZINESS [None]
  - HYPOXIA [None]
  - PRODUCTIVE COUGH [None]
  - SARCOIDOSIS [None]
  - SPUTUM DISCOLOURED [None]
